FAERS Safety Report 7876532-0 (Version None)
Quarter: 2011Q4

REPORT INFORMATION
  Report Type: 
  Country: None (occurrence: None)
  Receive Date: 20111031
  Receipt Date: 20111025
  Transmission Date: 20120403
  Serious: Yes (Death)
  Sender: FDA-Public Use
  Company Number: RU-ASTRAZENECA-2011SE59835

PATIENT
  Age: 10616 Day
  Sex: Female

DRUGS (4)
  1. BENADRYL HCL [Concomitant]
  2. ATROPINE [Concomitant]
  3. NAROPIN [Suspect]
     Indication: ANAESTHESIA
     Route: 065
     Dates: start: 20110920
  4. LIDOCAINE [Concomitant]

REACTIONS (1)
  - ADVERSE DRUG REACTION [None]
